FAERS Safety Report 8836035 (Version 1)
Quarter: 2012Q4

REPORT INFORMATION
  Report Type: 
  Country: US (occurrence: US)
  Receive Date: 20121011
  Receipt Date: 20121011
  Transmission Date: 20130627
  Serious: No
  Sender: FDA-Public Use
  Company Number: US-PFIZER INC-2012250932

PATIENT
  Age: 64 Year

DRUGS (1)
  1. ALTACE [Suspect]
     Dosage: UNK

REACTIONS (3)
  - Hypersensitivity [Unknown]
  - Swelling [Unknown]
  - Drug intolerance [Unknown]
